FAERS Safety Report 24584682 (Version 1)
Quarter: 2024Q4

REPORT INFORMATION
  Report Type: Spontaneous
  Country: US (occurrence: US)
  Receive Date: 20241106
  Receipt Date: 20241106
  Transmission Date: 20250114
  Serious: No
  Sender: VERTEX
  Company Number: US-VERTEX PHARMACEUTICALS-2024-012146

PATIENT
  Sex: Male

DRUGS (1)
  1. TRIKAFTA [Suspect]
     Active Substance: ELEXACAFTOR\IVACAFTOR\TEZACAFTOR
     Indication: Cystic fibrosis
     Dosage: (ELEXA 100 MG/TEZA 50 MG/IVA 75 MG) IN AM, (IVA 150 MG) IN PM
     Route: 048
     Dates: start: 20230829, end: 20240422

REACTIONS (2)
  - Weight increased [Recovering/Resolving]
  - Adjustment disorder with depressed mood [Recovering/Resolving]
